FAERS Safety Report 5190638-9 (Version None)
Quarter: 2006Q4

REPORT INFORMATION
  Report Type: 
  Country: None (occurrence: None)
  Receive Date: 20061222
  Receipt Date: 20061019
  Transmission Date: 20070319
  Serious: No
  Sender: FDA-Public Use
  Company Number: US-BRISTOL-MYERS SQUIBB COMPANY-13547062

PATIENT
  Age: 81 Year
  Sex: Female
  Weight: 77 kg

DRUGS (3)
  1. ORENCIA [Suspect]
     Indication: RHEUMATOID ARTHRITIS
     Dates: start: 20060801
  2. ALLEGRA-D 12 HOUR [Concomitant]
  3. SINGULAIR [Concomitant]

REACTIONS (2)
  - PRODUCTIVE COUGH [None]
  - SPUTUM DISCOLOURED [None]
